FAERS Safety Report 7897996-2 (Version None)
Quarter: 2011Q4

REPORT INFORMATION
  Report Type: 
  Country: None (occurrence: None)
  Receive Date: 20111107
  Receipt Date: 20111102
  Transmission Date: 20120403
  Serious: Yes (Hospitalization)
  Sender: FDA-Public Use
  Company Number: IT-AMGEN-ITASP2011056916

PATIENT
  Age: 44 Year
  Sex: Female

DRUGS (8)
  1. OMEPRAZOLE [Concomitant]
  2. NEULASTA [Suspect]
     Indication: NEUTROPENIA
     Dosage: 6 MG, QCYCLE
     Route: 058
     Dates: start: 20110922, end: 20110922
  3. EPIRUBICIN ACTAVIS [Concomitant]
  4. CISPLATIN [Concomitant]
  5. CYCLOPHOSPHAMIDE [Concomitant]
  6. INSULIN BOOTS [Concomitant]
  7. MEDROL [Concomitant]
  8. ZOFRAN [Concomitant]

REACTIONS (2)
  - URTICARIA [None]
  - PRURITUS [None]
